FAERS Safety Report 11820233 (Version 1)
Quarter: 2015Q4

REPORT INFORMATION
  Report Type: Spontaneous
  Country: US (occurrence: US)
  Receive Date: 20151210
  Receipt Date: 20151210
  Transmission Date: 20160305
  Serious: Yes (Hospitalization)
  Sender: FDA-Public Use
  Company Number: US-DRREDDYS-USA/USA/15/0054627

PATIENT
  Age: 39 Year
  Sex: Male

DRUGS (2)
  1. QUETIAPINE FUMARATE TABLETS [Interacting]
     Active Substance: QUETIAPINE FUMARATE
     Indication: PRODUCT USED FOR UNKNOWN INDICATION
     Route: 048
  2. HALOPERIDOL DECANOATE. [Suspect]
     Active Substance: HALOPERIDOL DECANOATE
     Indication: SCHIZOPHRENIA, PARANOID TYPE
     Route: 030

REACTIONS (7)
  - Nausea [Unknown]
  - Drug interaction [Unknown]
  - Acute kidney injury [Recovering/Resolving]
  - Suicide attempt [Unknown]
  - Rhabdomyolysis [Recovering/Resolving]
  - Vomiting [Unknown]
  - Intentional overdose [Unknown]
